FAERS Safety Report 18763204 (Version 1)
Quarter: 2021Q1

REPORT INFORMATION
  Report Type: Spontaneous
  Country: PR (occurrence: PR)
  Receive Date: 20210120
  Receipt Date: 20210120
  Transmission Date: 20210419
  Serious: Yes (Other)
  Sender: FDA-Public Use
  Company Number: None

PATIENT
  Age: 75 Year
  Sex: Male
  Weight: 72 kg

DRUGS (2)
  1. BOTOX [Suspect]
     Active Substance: ONABOTULINUMTOXINA
     Indication: BLEPHAROSPASM
     Route: 058
     Dates: start: 20200605, end: 20200605
  2. IRBESARTAN/HTC 150/12.25 MG [Concomitant]

REACTIONS (4)
  - Pain [None]
  - Mastication disorder [None]
  - Muscle contracture [None]
  - Discomfort [None]

NARRATIVE: CASE EVENT DATE: 20200606
